FAERS Safety Report 6095382-1 (Version None)
Quarter: 2009Q1

REPORT INFORMATION
  Report Type: 
  Country: None (occurrence: None)
  Receive Date: 20090227
  Receipt Date: 20080320
  Transmission Date: 20090719
  Serious: No
  Sender: FDA-Public Use
  Company Number: A0716703A

PATIENT
  Age: 19 Year
  Sex: Female

DRUGS (3)
  1. LAMICTAL [Suspect]
     Dosage: 125MG TWICE PER DAY
     Route: 048
     Dates: start: 20071201
  2. ZOLOFT [Concomitant]
  3. VITAMINS [Concomitant]

REACTIONS (1)
  - AMENORRHOEA [None]
